FAERS Safety Report 12215321 (Version 1)
Quarter: 2016Q1

REPORT INFORMATION
  Report Type: Report from Study
  Country: US (occurrence: US)
  Receive Date: 20160328
  Receipt Date: 20160328
  Transmission Date: 20160526
  Serious: Yes (Other)
  Sender: FDA-Public Use
  Company Number: US-MYLANLABS-2016M1012648

PATIENT

DRUGS (8)
  1. IRINOTECAN [Suspect]
     Active Substance: IRINOTECAN
     Indication: GASTROINTESTINAL CARCINOMA
     Dosage: 180 MG/M2 DAY 1 [FOLFIRI REGIMEN]
     Route: 065
  2. FOLINIC ACID [Suspect]
     Active Substance: LEUCOVORIN
     Indication: GASTROINTESTINAL CARCINOMA
     Dosage: 400 MG/M2 DAY 1 [FOLFIRI REGIMEN]
     Route: 065
  3. BEVACIZUMAB [Suspect]
     Active Substance: BEVACIZUMAB
     Indication: GASTROINTESTINAL CARCINOMA
     Dosage: 5 MG/KG ON DAY 1 OF A 14 DAY CYCLE
     Route: 065
  4. FLUOROURACIL. [Suspect]
     Active Substance: FLUOROURACIL
     Indication: GASTROINTESTINAL CARCINOMA
     Dosage: BOLUS; 400 MG/M2 DAY 1 [FOLFIRI REGIMEN]
     Route: 065
  5. SORAFENIB [Suspect]
     Active Substance: SORAFENIB
     Dosage: ON DAYS 3-7 AND DAYS 10-14; THEN DOSE LEVEL 3
     Route: 048
  6. FLUOROURACIL. [Suspect]
     Active Substance: FLUOROURACIL
     Dosage: 240 MG/M2 OVER 46 HOURS [FOLFIRI REGIMEN]
     Route: 065
  7. SORAFENIB [Suspect]
     Active Substance: SORAFENIB
     Indication: GASTROINTESTINAL CARCINOMA
     Dosage: ON DAYS 3-7 AND DAYS 10-14; THEN DOSE LEVEL 2 AND 3
     Route: 048
  8. SORAFENIB [Suspect]
     Active Substance: SORAFENIB
     Dosage: ON DAYS 3-6 AND DAYS 10-13; THEN DOSE LEVEL 3
     Route: 048

REACTIONS (1)
  - Hypophosphataemia [Unknown]
